FAERS Safety Report 8924903 (Version 2)
Quarter: 2012Q4

REPORT INFORMATION
  Report Type: 
  Country: KR (occurrence: KR)
  Receive Date: 20121126
  Receipt Date: 20121203
  Transmission Date: 20130627
  Serious: Yes (Other)
  Sender: FDA-Public Use
  Company Number: KR-ASTRAZENECA-2012SE86028

PATIENT

DRUGS (2)
  1. MEROPENEM [Suspect]
     Indication: ANTIBIOTIC THERAPY
     Route: 042
  2. VALPROIC ACID [Interacting]
     Indication: CONVULSION PROPHYLAXIS
     Route: 048

REACTIONS (3)
  - Anticonvulsant drug level decreased [Unknown]
  - Convulsion [Unknown]
  - Drug interaction [Unknown]
